FAERS Safety Report 7152892-3 (Version None)
Quarter: 2010Q4

REPORT INFORMATION
  Report Type: 
  Country: None (occurrence: None)
  Receive Date: 20101213
  Receipt Date: 20101203
  Transmission Date: 20110411
  Serious: Yes (Other)
  Sender: FDA-Public Use
  Company Number: US-JNJCH-2010028001

PATIENT
  Age: 14 Year
  Sex: Female
  Weight: 49.9 kg

DRUGS (4)
  1. BENADRYL [Suspect]
     Indication: HYPERSENSITIVITY
     Dosage: TEXT:TWO TABLETS ONCE
     Route: 048
     Dates: start: 20101203, end: 20101203
  2. ALBUTEROL [Concomitant]
     Indication: ASTHMA
     Dosage: TEXT:TWO PUFFS
     Route: 055
  3. MONTELUKAST SODIUM [Concomitant]
     Indication: ASTHMA
     Dosage: TEXT:10 MG
     Route: 065
  4. LORATADINE [Concomitant]
     Indication: HYPERSENSITIVITY
     Dosage: TEXT:10 MG
     Route: 065

REACTIONS (2)
  - ASTHMA [None]
  - OFF LABEL USE [None]
